FAERS Safety Report 7586802-1 (Version None)
Quarter: 2011Q3

REPORT INFORMATION
  Report Type: 
  Country: None (occurrence: None)
  Receive Date: 20110701
  Receipt Date: 20110621
  Transmission Date: 20111222
  Serious: Yes (Other)
  Sender: FDA-Public Use
  Company Number: PHHY2011HK55956

PATIENT
  Age: 63 Year
  Sex: Female

DRUGS (4)
  1. SIMVASTATIN [Interacting]
     Dosage: 80 MG, DAILY
  2. SIMVASTATIN [Suspect]
     Indication: HYPERTENSION
     Dosage: 40 MG, DAILY
  3. ENALAPRIL MALEATE [Concomitant]
     Dosage: 20 MG, DAILY
  4. DILTIAZEM [Interacting]
     Indication: TYPE IIA HYPERLIPIDAEMIA
     Dosage: 90 MG, BID

REACTIONS (4)
  - ALANINE AMINOTRANSFERASE INCREASED [None]
  - RESPIRATORY DISORDER [None]
  - DRUG INTERACTION [None]
  - BLOOD CREATINE PHOSPHOKINASE INCREASED [None]
